FAERS Safety Report 4343146-9 (Version None)
Quarter: 2004Q2

REPORT INFORMATION
  Report Type: 
  Country: None (occurrence: None)
  Receive Date: 20040419
  Receipt Date: 20040405
  Transmission Date: 20050107
  Serious: Yes (Congenital Anomaly)
  Sender: FDA-Public Use
  Company Number: A01200401593

PATIENT

DRUGS (4)
  1. HYDROXYCHLOROQUINE SULFATE [Suspect]
     Dosage: TRANSPLANCENTAL
     Route: 064
  2. SULPHASALAZINE [Suspect]
     Dosage: TRANSPLANCENTAL
     Route: 064
  3. DICLOFENAC SODIUM [Concomitant]
  4. CO-CODAMOL [Concomitant]

REACTIONS (4)
  - ABORTION INDUCED [None]
  - CHROMOSOME ABNORMALITY [None]
  - DRUG EXPOSURE DURING PREGNANCY [None]
  - HOLOPROSENCEPHALY [None]
